FAERS Safety Report 9136096 (Version 1)
Quarter: 2013Q1

REPORT INFORMATION
  Report Type: Spontaneous
  Country: JP (occurrence: JP)
  Receive Date: 20130304
  Receipt Date: 20130304
  Transmission Date: 20140127
  Serious: Yes (Hospitalization, Other)
  Sender: FDA-Public Use
  Company Number: JP-PFIZER INC-2012257985

PATIENT
  Age: 32 Year
  Sex: Male

DRUGS (2)
  1. CHAMPIX [Suspect]
     Indication: SMOKING CESSATION THERAPY
     Dosage: UNK
     Route: 048
     Dates: start: 201209, end: 2012
  2. REZALTAS [Concomitant]
     Indication: HYPERTENSION
     Dosage: 1 TABLET (UNKNOWN DOSE) DAILY
     Route: 048
     Dates: start: 201102

REACTIONS (1)
  - Epilepsy [Recovered/Resolved]
